FAERS Safety Report 6109506-0 (Version None)
Quarter: 2009Q1

REPORT INFORMATION
  Report Type: 
  Country: None (occurrence: None)
  Receive Date: 20090306
  Receipt Date: 20090306
  Transmission Date: 20090719
  Serious: No
  Sender: FDA-Public Use
  Company Number: None

PATIENT
  Age: 30 Year
  Sex: Female
  Weight: 97.5234 kg

DRUGS (1)
  1. SENSORCAINE + EPINEPHRINE 0.25% + 1:200,000 ASTRA ZENECA [Suspect]
     Indication: CULDOPLASTY
     Dosage: 30ML ONE TIME ONLY ID ONE DOSE
     Route: 026
     Dates: start: 20090305, end: 20090305

REACTIONS (2)
  - DRUG INEFFECTIVE [None]
  - PRODUCT QUALITY ISSUE [None]
